FAERS Safety Report 15535519 (Version 2)
Quarter: 2018Q4

REPORT INFORMATION
  Report Type: Spontaneous
  Country: US (occurrence: US)
  Receive Date: 20181022
  Receipt Date: 20181109
  Transmission Date: 20190205
  Serious: No
  Sender: FDA-Public Use
  Company Number: US-COLGATE PALMOLIVE COMPANY-20181002450

PATIENT
  Sex: Female

DRUGS (2)
  1. COL TP OPTIC WHITE UNSPECIFIED [Suspect]
     Active Substance: SODIUM MONOFLUOROPHOSPHATE
     Indication: TOOTH DISCOLOURATION
  2. COL TP OPTIC WHITE UNSPECIFIED [Suspect]
     Active Substance: SODIUM MONOFLUOROPHOSPHATE
     Indication: DENTAL DISORDER PROPHYLAXIS
     Dosage: UNK, BID
     Route: 048
     Dates: start: 201808, end: 201810

REACTIONS (4)
  - Paraesthesia oral [Not Recovered/Not Resolved]
  - Dysgeusia [Not Recovered/Not Resolved]
  - Tongue discomfort [Not Recovered/Not Resolved]
  - Oral discomfort [Not Recovered/Not Resolved]

NARRATIVE: CASE EVENT DATE: 2018
